FAERS Safety Report 22539674 (Version 1)
Quarter: 2023Q2

REPORT INFORMATION
  Report Type: Spontaneous
  Country: US (occurrence: US)
  Receive Date: 20230609
  Receipt Date: 20230609
  Transmission Date: 20230721
  Serious: Yes (Other)
  Sender: FDA-Public Use
  Company Number: US-BAYER-2023A075020

PATIENT
  Age: 62 Year
  Sex: Male

DRUGS (1)
  1. BAYER LOW DOSE [Suspect]
     Active Substance: ASPIRIN
     Indication: Thrombosis
     Dosage: 1 DF, QD
     Route: 048
     Dates: start: 201307, end: 2015

REACTIONS (4)
  - Cerebral microhaemorrhage [Unknown]
  - Brain injury [Unknown]
  - Hypertension [Unknown]
  - Drug hypersensitivity [None]

NARRATIVE: CASE EVENT DATE: 20140801
